FAERS Safety Report 10646209 (Version 1)
Quarter: 2014Q4

REPORT INFORMATION
  Report Type: Spontaneous
  Country: US (occurrence: US)
  Receive Date: 20141211
  Receipt Date: 20141211
  Transmission Date: 20150529
  Serious: No
  Sender: FDA-Public Use
  Company Number: US-009507513-1412USA004074

PATIENT

DRUGS (2)
  1. TAGAMET [Interacting]
     Active Substance: CIMETIDINE
  2. NASONEX [Suspect]
     Active Substance: MOMETASONE FUROATE

REACTIONS (2)
  - Drug interaction [Unknown]
  - Epistaxis [Unknown]
